FAERS Safety Report 4670158-8 (Version None)
Quarter: 2005Q2

REPORT INFORMATION
  Report Type: 
  Country: None (occurrence: None)
  Receive Date: 20050520
  Receipt Date: 20050513
  Transmission Date: 20051028
  Serious: Yes (Other)
  Sender: FDA-Public Use
  Company Number: 2005061102

PATIENT
  Age: 88 Year
  Sex: Male
  Weight: 69.4003 kg

DRUGS (3)
  1. BEXTRA [Suspect]
     Indication: ARTHRITIS
     Dosage: 20 MG (20 MG, 1 IN 1 D), ORAL
     Route: 048
     Dates: end: 20050101
  2. NSAID'S (NSAID'S) [Suspect]
     Indication: ILL-DEFINED DISORDER
  3. MULTIVITAMINS (MUTIVITAMINS) [Concomitant]

REACTIONS (4)
  - RASH [None]
  - SKIN DISCOLOURATION [None]
  - SKIN HAEMORRHAGE [None]
  - SKIN LACERATION [None]
